FAERS Safety Report 14588261 (Version 1)
Quarter: 2018Q1

REPORT INFORMATION
  Report Type: Spontaneous
  Country: US (occurrence: US)
  Receive Date: 20180301
  Receipt Date: 20180301
  Transmission Date: 20180509
  Serious: No
  Sender: FDA-Public Use
  Company Number: US-PERRIGO-17US003057

PATIENT
  Age: 69 Year
  Sex: Male
  Weight: 72.56 kg

DRUGS (8)
  1. TESTOSTERONE. [Suspect]
     Active Substance: TESTOSTERONE
     Dosage: 25 MG, QAM
     Route: 061
     Dates: start: 20170320
  2. COENZYME Q10 [Concomitant]
     Active Substance: UBIDECARENONE
     Indication: SUPPLEMENTATION THERAPY
     Dosage: 100MG
     Route: 065
  3. ASPIRIN                            /00002701/ [Concomitant]
     Active Substance: ASPIRIN
     Indication: ROUTINE HEALTH MAINTENANCE
     Dosage: 81MG
     Route: 065
  4. VITAMIN D3 [Concomitant]
     Active Substance: CHOLECALCIFEROL
     Indication: PRODUCT USED FOR UNKNOWN INDICATION
     Dosage: 2000U
     Route: 065
  5. ROSUVASTATIN. [Concomitant]
     Active Substance: ROSUVASTATIN
     Indication: BLOOD CHOLESTEROL INCREASED
     Dosage: 10MG
     Route: 065
  6. CALCIUM [Concomitant]
     Active Substance: CALCIUM
     Indication: SUPPLEMENTATION THERAPY
     Dosage: 500MG
     Route: 065
  7. GLUCOSAMINE + CHONDROITIN          /08437701/ [Concomitant]
     Indication: SUPPLEMENTATION THERAPY
     Dosage: 1500MG
     Route: 065
  8. TESTOSTERONE. [Suspect]
     Active Substance: TESTOSTERONE
     Indication: BLOOD TESTOSTERONE DECREASED
     Dosage: 37.5 MG, QAM
     Route: 061
     Dates: start: 201701, end: 20170319

REACTIONS (2)
  - Spontaneous penile erection [Recovered/Resolved]
  - Prescribed underdose [Not Recovered/Not Resolved]

NARRATIVE: CASE EVENT DATE: 201701
